FAERS Safety Report 15684654 (Version 1)
Quarter: 2018Q4

REPORT INFORMATION
  Report Type: Spontaneous
  Country: CH (occurrence: CH)
  Receive Date: 20181204
  Receipt Date: 20181204
  Transmission Date: 20190205
  Serious: Yes (Hospitalization, Other)
  Sender: FDA-Public Use
  Company Number: CH-TEVA-2018-CH-983176

PATIENT
  Age: 90 Year
  Sex: Female
  Weight: 68 kg

DRUGS (11)
  1. DAFALGAN [Concomitant]
     Active Substance: ACETAMINOPHEN
     Dosage: MAXIMUM OF 4X PER 24 HOURS, AS NECESSARY
  2. NEBILET 5 MG [Concomitant]
     Dosage: 7.5 MILLIGRAM DAILY;
     Route: 048
  3. MARCOUMAR 3 MG [Concomitant]
     Active Substance: PHENPROCOUMON
     Dosage: SUSPENDED FROM 22 OCTOBER TO 6 NOVEMBER 2018
     Route: 048
     Dates: start: 20181107
  4. TORASEMID SANDOZ 10 MG [Concomitant]
     Dosage: 3-2-0-0 SUSPENDED FROM 22 OCTOBER - 6 NOVEMBER 2018, 10 MG PER DAY FROM 7 NOVEMBER 2018
     Route: 048
  5. MARCOUMAR 3 MG [Concomitant]
     Active Substance: PHENPROCOUMON
     Dosage: SUSPENDED FROM 22 OCTOBER TO 6 NOVEMBER 2018
     Route: 048
     Dates: end: 20181022
  6. DIGOXIN 0.125 MG [Concomitant]
     Active Substance: DIGOXIN
     Dosage: SUSPENDED FROM 22 OCTOBER 2018
     Route: 048
     Dates: end: 20181022
  7. CIPROFLOXACIN-MEPHA 750 MG [Suspect]
     Active Substance: CIPROFLOXACIN
     Dosage: 1500 MILLIGRAM DAILY;
     Route: 048
     Dates: start: 20181007, end: 20181022
  8. CLINDAMYCIN SANDOZ 300 MG [Suspect]
     Active Substance: CLINDAMYCIN HYDROCHLORIDE
     Dosage: 900 MILLIGRAM DAILY;
     Route: 048
     Dates: start: 20181007, end: 20181022
  9. MARCOUMAR 3 MG [Concomitant]
     Active Substance: PHENPROCOUMON
     Route: 048
  10. ACIDUM FOLICUM STREULI 5 MG [Concomitant]
     Dosage: 5 MILLIGRAM DAILY;
     Route: 048
  11. METFORMIN-MEPHA 500 MG [Concomitant]
     Indication: DIABETES MELLITUS
     Dosage: 1500 MILLIGRAM DAILY; CEASED ON 22 OCTOBER 2018 (NOW JANUVIA)
     Route: 048
     Dates: end: 20181022

REACTIONS (3)
  - Tubulointerstitial nephritis [Recovering/Resolving]
  - Overdose [Recovered/Resolved]
  - Renal failure [Recovering/Resolving]

NARRATIVE: CASE EVENT DATE: 20181007
